FAERS Safety Report 20196408 (Version 4)
Quarter: 2022Q4

REPORT INFORMATION
  Report Type: Report from Study
  Country: US (occurrence: US)
  Receive Date: 20211216
  Receipt Date: 20221015
  Transmission Date: 20230112
  Serious: Yes (Hospitalization)
  Sender: FDA-Public Use
  Company Number: US-TAKEDA-2021TUS079942

PATIENT
  Age: 65 Year
  Sex: Female

DRUGS (16)
  1. TEDUGLUTIDE [Suspect]
     Active Substance: TEDUGLUTIDE
     Indication: Short-bowel syndrome
     Dosage: 3.085 MILLIGRAM, QD
     Route: 058
     Dates: start: 202111
  2. TEDUGLUTIDE [Suspect]
     Active Substance: TEDUGLUTIDE
     Indication: Short-bowel syndrome
     Dosage: 3.085 MILLIGRAM, QD
     Route: 058
     Dates: start: 202111
  3. TEDUGLUTIDE [Suspect]
     Active Substance: TEDUGLUTIDE
     Indication: Short-bowel syndrome
     Dosage: 3.085 MILLIGRAM, QD
     Route: 058
     Dates: start: 202111
  4. TEDUGLUTIDE [Suspect]
     Active Substance: TEDUGLUTIDE
     Indication: Short-bowel syndrome
     Dosage: 3.085 MILLIGRAM, QD
     Route: 058
     Dates: start: 202111
  5. TEDUGLUTIDE [Suspect]
     Active Substance: TEDUGLUTIDE
     Dosage: 3.085 MILLIGRAM, QD
     Route: 058
     Dates: start: 20211109
  6. TEDUGLUTIDE [Suspect]
     Active Substance: TEDUGLUTIDE
     Dosage: 3.085 MILLIGRAM, QD
     Route: 058
     Dates: start: 20211109
  7. TEDUGLUTIDE [Suspect]
     Active Substance: TEDUGLUTIDE
     Dosage: 3.085 MILLIGRAM, QD
     Route: 058
     Dates: start: 20211109
  8. TEDUGLUTIDE [Suspect]
     Active Substance: TEDUGLUTIDE
     Dosage: 3.085 MILLIGRAM, QD
     Route: 058
     Dates: start: 20211109
  9. TEDUGLUTIDE [Suspect]
     Active Substance: TEDUGLUTIDE
     Dosage: 3.085 MILLIGRAM, QD
     Route: 058
     Dates: start: 20211115
  10. TEDUGLUTIDE [Suspect]
     Active Substance: TEDUGLUTIDE
     Dosage: 3.085 MILLIGRAM, QD
     Route: 058
     Dates: start: 20211115
  11. TEDUGLUTIDE [Suspect]
     Active Substance: TEDUGLUTIDE
     Dosage: 3.085 MILLIGRAM, QD
     Route: 058
     Dates: start: 20211115
  12. TEDUGLUTIDE [Suspect]
     Active Substance: TEDUGLUTIDE
     Dosage: 3.085 MILLIGRAM, QD
     Route: 058
     Dates: start: 20211115
  13. TEDUGLUTIDE [Suspect]
     Active Substance: TEDUGLUTIDE
     Dosage: 3.085 MILLIGRAM, QD
     Route: 058
     Dates: start: 20220715
  14. TEDUGLUTIDE [Suspect]
     Active Substance: TEDUGLUTIDE
     Dosage: 3.085 MILLIGRAM, QD
     Route: 058
     Dates: start: 20220715
  15. TEDUGLUTIDE [Suspect]
     Active Substance: TEDUGLUTIDE
     Dosage: 3.085 MILLIGRAM, QD
     Route: 058
     Dates: start: 20220715
  16. TEDUGLUTIDE [Suspect]
     Active Substance: TEDUGLUTIDE
     Dosage: 3.085 MILLIGRAM, QD
     Route: 058
     Dates: start: 20220715

REACTIONS (3)
  - Hospitalisation [Recovered/Resolved]
  - Peripheral swelling [Recovering/Resolving]
  - Prealbumin decreased [Unknown]

NARRATIVE: CASE EVENT DATE: 20211206
